FAERS Safety Report 11138919 (Version 1)
Quarter: 2015Q2

REPORT INFORMATION
  Report Type: Report from Study
  Country: BR (occurrence: BR)
  Receive Date: 20150527
  Receipt Date: 20150527
  Transmission Date: 20150821
  Serious: Yes (Hospitalization, Disabling)
  Sender: FDA-Public Use
  Company Number: BR-ABBVIE-15K-020-1395541-00

PATIENT
  Age: 41 Year
  Sex: Male
  Weight: 53 kg

DRUGS (2)
  1. INDOCID [Concomitant]
     Active Substance: INDOMETHACIN
     Indication: SPINAL PAIN
     Route: 048
     Dates: start: 2009
  2. HUMIRA [Suspect]
     Active Substance: ADALIMUMAB
     Indication: ANKYLOSING SPONDYLITIS
     Route: 058
     Dates: start: 20120101

REACTIONS (7)
  - Pneumonia [Recovered/Resolved]
  - Mobility decreased [Not Recovered/Not Resolved]
  - Rash erythematous [Recovered/Resolved]
  - Eye inflammation [Recovering/Resolving]
  - Intervertebral disc calcification [Not Recovered/Not Resolved]
  - Influenza [Recovered/Resolved]
  - Musculoskeletal stiffness [Not Recovered/Not Resolved]

NARRATIVE: CASE EVENT DATE: 201412
